FAERS Safety Report 7229453-0 (Version None)
Quarter: 2011Q1

REPORT INFORMATION
  Report Type: 
  Country: None (occurrence: None)
  Receive Date: 20110117
  Receipt Date: 20110107
  Transmission Date: 20110831
  Serious: Yes (Other)
  Sender: FDA-Public Use
  Company Number: B0693872A

PATIENT
  Sex: Male

DRUGS (8)
  1. ABILIFY [Suspect]
     Indication: PRODUCT USED FOR UNKNOWN INDICATION
     Dosage: 10MG TWICE PER DAY
     Route: 048
     Dates: start: 20100407
  2. LAMOTRIGINE [Suspect]
     Indication: EPILEPSY
     Dosage: 100MG TWICE PER DAY
     Route: 048
  3. ATARAX [Suspect]
     Indication: ANXIETY
     Dosage: 25MG TWICE PER DAY
     Route: 048
  4. TRANXENE [Suspect]
     Indication: ANXIETY
     Dosage: 20MG THREE TIMES PER DAY
     Route: 048
  5. KEPPRA [Suspect]
     Indication: EPILEPSY
     Dosage: 500MG SIX TIMES PER DAY
     Route: 048
  6. TEGRETOL [Suspect]
     Indication: EPILEPSY
     Dosage: 200MG THREE TIMES PER DAY
     Route: 048
  7. URBANYL [Suspect]
     Indication: EPILEPSY
     Dosage: 10MG SIX TIMES PER DAY
     Route: 048
  8. TRIMEPRAZINE TARTRATE [Suspect]
     Indication: INSOMNIA
     Dosage: 15DROP PER DAY
     Route: 048

REACTIONS (3)
  - ELECTROCARDIOGRAM QT PROLONGED [None]
  - ABNORMAL BEHAVIOUR [None]
  - BRADYCARDIA [None]
